FAERS Safety Report 8911584 (Version 1)
Quarter: 2012Q4

REPORT INFORMATION
  Report Type: 
  Country: CN (occurrence: CN)
  Receive Date: 20121116
  Receipt Date: 20121116
  Transmission Date: 20130627
  Serious: Yes (Other)
  Sender: FDA-Public Use
  Company Number: CN-JNJFOC-20121104257

PATIENT
  Age: 42 Year
  Sex: Male

DRUGS (1)
  1. TEA EXTRACT [Suspect]
     Indication: PRODUCT USED FOR UNKNOWN INDICATION
     Route: 048
     Dates: start: 20121105, end: 20121106

REACTIONS (4)
  - Glossodynia [Recovering/Resolving]
  - Oral mucosal exfoliation [Recovering/Resolving]
  - Ageusia [Recovering/Resolving]
  - Hypoaesthesia oral [Recovering/Resolving]
